FAERS Safety Report 24253356 (Version 1)
Quarter: 2024Q3

REPORT INFORMATION
  Report Type: Report from Study
  Country: US (occurrence: US)
  Receive Date: 20240827
  Receipt Date: 20240827
  Transmission Date: 20241017
  Serious: Yes (Other)
  Sender: ITALFARMACO
  Company Number: US-ITALFARMACO SPA-2160903

PATIENT
  Age: 63 Year
  Sex: Female

DRUGS (1)
  1. TIGLUTIK [Suspect]
     Active Substance: RILUZOLE
     Indication: Amyotrophic lateral sclerosis
     Route: 048
     Dates: start: 20240717, end: 20240807

REACTIONS (1)
  - Drug intolerance [Unknown]
